FAERS Safety Report 6690433-5 (Version None)
Quarter: 2010Q2

REPORT INFORMATION
  Report Type: 
  Country: None (occurrence: None)
  Receive Date: 20100421
  Receipt Date: 20090324
  Transmission Date: 20101027
  Serious: No
  Sender: FDA-Public Use
  Company Number: US-ASTRAZENECA-2009UW08744

PATIENT
  Age: 68 Year
  Sex: Male

DRUGS (3)
  1. CASODEX [Suspect]
     Route: 048
     Dates: start: 20080129, end: 20080305
  2. CASODEX [Suspect]
     Route: 048
     Dates: start: 20080306
  3. LUPRON [Concomitant]

REACTIONS (3)
  - BLOOD TESTOSTERONE ABNORMAL [None]
  - DISEASE PROGRESSION [None]
  - PROSTATIC SPECIFIC ANTIGEN INCREASED [None]
